FAERS Safety Report 24788125 (Version 2)
Quarter: 2025Q1

REPORT INFORMATION
  Report Type: Spontaneous
  Country: US (occurrence: US)
  Receive Date: 20241230
  Receipt Date: 20250121
  Transmission Date: 20250409
  Serious: No
  Sender: SANOFI AVENTIS
  Company Number: US-SA-2024SA383263

PATIENT
  Age: 15 Year
  Sex: Male
  Weight: 68.027 kg

DRUGS (2)
  1. DUPIXENT [Suspect]
     Active Substance: DUPILUMAB
     Indication: Eosinophilic oesophagitis
     Dosage: 300 MG, QOW
     Route: 058
     Dates: start: 20241028
  2. ABREVA [Concomitant]
     Active Substance: DOCOSANOL

REACTIONS (6)
  - Dizziness [Not Recovered/Not Resolved]
  - Urticaria [Unknown]
  - Injection site pruritus [Unknown]
  - Injection site urticaria [Unknown]
  - Injection site erythema [Unknown]
  - Oral herpes [Recovered/Resolved]

NARRATIVE: CASE EVENT DATE: 20241201
